FAERS Safety Report 6735477-X (Version None)
Quarter: 2010Q2

REPORT INFORMATION
  Report Type: 
  Country: None (occurrence: None)
  Receive Date: 20100519
  Receipt Date: 20100511
  Transmission Date: 20101027
  Serious: Yes (Hospitalization)
  Sender: FDA-Public Use
  Company Number: CIMD20100001

PATIENT
  Age: 77 Year
  Sex: Female

DRUGS (2)
  1. CIMETIDINE [Suspect]
     Indication: DRUG USE FOR UNKNOWN INDICATION
  2. CILOSTAZOL [Suspect]
     Indication: DRUG USE FOR UNKNOWN INDICATION

REACTIONS (10)
  - ACTIVATED PARTIAL THROMBOPLASTIN TIME PROLONGED [None]
  - ANAEMIA [None]
  - BLOOD ACID PHOSPHATASE INCREASED [None]
  - GAMMA-GLUTAMYLTRANSFERASE INCREASED [None]
  - INFLAMMATION [None]
  - INTESTINAL HAEMATOMA [None]
  - NAUSEA [None]
  - PLATELET COUNT DECREASED [None]
  - PNEUMONIA ASPIRATION [None]
  - VOMITING [None]
